FAERS Safety Report 7120126-1 (Version None)
Quarter: 2010Q4

REPORT INFORMATION
  Report Type: 
  Country: None (occurrence: None)
  Receive Date: 20101123
  Receipt Date: 20101117
  Transmission Date: 20110411
  Serious: Yes (Other)
  Sender: FDA-Public Use
  Company Number: AU-JNJFOC-20101102545

PATIENT
  Sex: Male

DRUGS (2)
  1. REMICADE [Suspect]
     Indication: ILL-DEFINED DISORDER
     Route: 042
  2. REMICADE [Suspect]
     Route: 042

REACTIONS (3)
  - ARTHRITIS INFECTIVE [None]
  - FALL [None]
  - SKIN CANCER [None]
